FAERS Safety Report 11584627 (Version 1)
Quarter: 2015Q4

REPORT INFORMATION
  Report Type: Spontaneous
  Country: CH (occurrence: CH)
  Receive Date: 20151001
  Receipt Date: 20151001
  Transmission Date: 20160304
  Serious: Yes (Hospitalization)
  Sender: FDA-Public Use
  Company Number: CH-TEVA-596507ISR

PATIENT
  Age: 21 Year
  Sex: Female

DRUGS (3)
  1. BRUFEN [Suspect]
     Active Substance: IBUPROFEN
     Indication: SCIATICA
     Route: 048
     Dates: start: 2015, end: 201508
  2. IRFEN-600 LACTAB [Suspect]
     Active Substance: IBUPROFEN
     Indication: SCIATICA
     Dosage: 1800 MILLIGRAM DAILY;
     Route: 048
     Dates: start: 2015, end: 20150809
  3. NOVALGIN [Suspect]
     Active Substance: METAMIZOLE SODIUM
     Indication: SCIATICA
     Dosage: INTAKE ABOUT 2 TO 4 TIMES PER DAY
     Route: 048
     Dates: start: 201507, end: 20150809

REACTIONS (4)
  - Agranulocytosis [Recovered/Resolved]
  - Lymphopenia [Recovered/Resolved]
  - Agranulocytosis [Recovered/Resolved]
  - Normochromic normocytic anaemia [Not Recovered/Not Resolved]

NARRATIVE: CASE EVENT DATE: 20150809
